FAERS Safety Report 19961030 (Version 1)
Quarter: 2021Q4

REPORT INFORMATION
  Report Type: Spontaneous
  Country: US (occurrence: US)
  Receive Date: 20211016
  Receipt Date: 20211016
  Transmission Date: 20220303
  Serious: No
  Sender: FDA-Public Use
  Company Number: US-TAKEDA-2021TUS062725

PATIENT
  Sex: Female
  Weight: 62 kg

DRUGS (3)
  1. MOTEGRITY [Suspect]
     Active Substance: PRUCALOPRIDE SUCCINATE
     Indication: Constipation
     Dosage: 2 MILLIGRAM, QD
     Route: 065
  2. LEVOXYL [Concomitant]
     Active Substance: LEVOTHYROXINE SODIUM
     Indication: Thyroid disorder
  3. Miramax [Concomitant]
     Indication: Faeces hard

REACTIONS (8)
  - Adverse drug reaction [Unknown]
  - Sleep disorder [Unknown]
  - Bowel movement irregularity [Unknown]
  - Gastritis [Unknown]
  - Drug ineffective [Unknown]
  - Faeces hard [Unknown]
  - Abdominal pain [Unknown]
  - Headache [Unknown]
